FAERS Safety Report 19763824 (Version 1)
Quarter: 2021Q3

REPORT INFORMATION
  Report Type: Spontaneous
  Country: AR (occurrence: AR)
  Receive Date: 20210830
  Receipt Date: 20210830
  Transmission Date: 20211014
  Serious: Yes (Other)
  Sender: FDA-Public Use
  Company Number: AR-ORGANON-O2108ARG002003

PATIENT
  Age: 86 Year
  Sex: Female

DRUGS (3)
  1. ZOCOR [Suspect]
     Active Substance: SIMVASTATIN
     Dosage: 1 TABLET AT NIGHT,QPM
     Route: 048
     Dates: start: 202108
  2. ZOCOR [Suspect]
     Active Substance: SIMVASTATIN
     Dosage: UNK
     Route: 048
  3. VASOTENAL [Suspect]
     Active Substance: SIMVASTATIN
     Dosage: UNK
     Dates: start: 20210803, end: 20210819

REACTIONS (2)
  - Hallucination [Unknown]
  - Feeling abnormal [Unknown]

NARRATIVE: CASE EVENT DATE: 202108
